FAERS Safety Report 20291462 (Version 1)
Quarter: 2022Q1

REPORT INFORMATION
  Report Type: Spontaneous
  Country: US (occurrence: None)
  Receive Date: 20220104
  Receipt Date: 20220104
  Transmission Date: 20220423
  Serious: No
  Sender: FDA-Public Use
  Company Number: 2021A722104

PATIENT
  Age: 7492 Day
  Sex: Female

DRUGS (3)
  1. TUDORZA PRESSAIR [Suspect]
     Active Substance: ACLIDINIUM BROMIDE
     Indication: Pneumonitis
     Dosage: 400MCG ONE INHALATION TWICE DAILY ,TWO TIMES A DAY
     Route: 055
     Dates: start: 20210902, end: 20210906
  2. TUDORZA PRESSAIR [Suspect]
     Active Substance: ACLIDINIUM BROMIDE
     Indication: Bacterial infection
     Dosage: 400MCG ONE INHALATION TWICE DAILY ,TWO TIMES A DAY
     Route: 055
     Dates: start: 20210902, end: 20210906
  3. ALBUTEROL [Concomitant]
     Active Substance: ALBUTEROL

REACTIONS (8)
  - Dysgeusia [Unknown]
  - Drug ineffective [Not Recovered/Not Resolved]
  - Incorrect dose administered by device [Unknown]
  - Wrong technique in device usage process [Unknown]
  - Drug dose omission by device [Not Recovered/Not Resolved]
  - Product use issue [Not Recovered/Not Resolved]
  - Device use issue [Recovered/Resolved]
  - Device malfunction [Unknown]

NARRATIVE: CASE EVENT DATE: 20210902
